FAERS Safety Report 5163681-3 (Version None)
Quarter: 2006Q4

REPORT INFORMATION
  Report Type: 
  Country: None (occurrence: None)
  Receive Date: 20061204
  Receipt Date: 20001205
  Transmission Date: 20070319
  Serious: Yes (Hospitalization)
  Sender: FDA-Public Use
  Company Number: FR-GLAXOSMITHKLINE-B0094213A

PATIENT
  Sex: Male
  Weight: 2.2 kg

DRUGS (8)
  1. ZIDOVUDINE [Suspect]
     Indication: HUMAN IMMUNODEFICIENCY VIRUS TRANSMISSION
     Route: 048
     Dates: start: 19990827
  2. AMPRENAVIR [Suspect]
     Indication: HIV INFECTION
     Route: 048
  3. ZIDOVUDINE [Suspect]
     Route: 048
  4. COMBIVIR [Suspect]
     Indication: HIV INFECTION
     Route: 048
  5. STAVUDINE [Suspect]
     Indication: HIV INFECTION
     Route: 048
  6. DIDANOSINE [Suspect]
     Indication: HIV INFECTION
     Route: 048
  7. IRON [Concomitant]
  8. VITAMIN [Concomitant]

REACTIONS (5)
  - ANAEMIA [None]
  - DRUG EXPOSURE DURING PREGNANCY [None]
  - HYPERLACTACIDAEMIA [None]
  - HYPERTRIGLYCERIDAEMIA [None]
  - NEUTROPENIA [None]
